FAERS Safety Report 9418769 (Version 1)
Quarter: 2013Q3

REPORT INFORMATION
  Report Type: Spontaneous
  Country: US (occurrence: US)
  Receive Date: 20130725
  Receipt Date: 20130725
  Transmission Date: 20140515
  Serious: No
  Sender: FDA-Public Use
  Company Number: US-PFIZER INC-2013041221

PATIENT
  Age: 52 Year
  Sex: Female
  Weight: 132 kg

DRUGS (11)
  1. GABAPENTIN [Suspect]
     Indication: NEUROPATHY PERIPHERAL
     Dosage: 300 MG, 3X/DAY
  2. GABAPENTIN [Suspect]
     Indication: SPINAL COLUMN STENOSIS
  3. GABAPENTIN [Suspect]
     Indication: BACK PAIN
  4. LYRICA [Suspect]
     Indication: NEUROPATHY PERIPHERAL
     Dosage: 150 MG, 3X/DAY
     Dates: end: 201307
  5. LYRICA [Suspect]
     Indication: BACK PAIN
  6. LISINOPRIL [Concomitant]
     Indication: HYPERTENSION
     Dosage: 10 MG, UNK
  7. ADVAIR [Concomitant]
     Indication: ASTHMA
     Dosage: 250/50 MG, UNK
  8. VENTOLIN [Concomitant]
     Indication: ASTHMA
     Dosage: UNK
  9. ALBUTEROL [Concomitant]
     Indication: ASTHMA
     Dosage: UNK, AS NEEDED
  10. PAXIL [Concomitant]
     Indication: DEPRESSION
     Dosage: 60 MG, 1X/DAY
  11. FUROSEMIDE [Concomitant]
     Indication: FLUID RETENTION
     Dosage: UNK

REACTIONS (5)
  - Off label use [Unknown]
  - Blood creatinine increased [Unknown]
  - Gait disturbance [Unknown]
  - Osteoporosis [Unknown]
  - Drug ineffective for unapproved indication [Unknown]
